FAERS Safety Report 7322509-3 (Version None)
Quarter: 2011Q1

REPORT INFORMATION
  Report Type: 
  Country: None (occurrence: None)
  Receive Date: 20110301
  Receipt Date: 20110210
  Transmission Date: 20110831
  Serious: Yes (Hospitalization, Other)
  Sender: FDA-Public Use
  Company Number: US-BAYER-201018639NA

PATIENT
  Sex: Female
  Weight: 64.399 kg

DRUGS (7)
  1. LASIX [Concomitant]
     Dosage: 20 MG, QD
  2. ASPIRIN [Concomitant]
     Dosage: 81 MG, QD
  3. COREG [Concomitant]
     Dosage: 6.25 MG, BID
  4. NICODERM [Concomitant]
     Dosage: 21 MG, QD
  5. YASMIN [Suspect]
     Indication: PRODUCT USED FOR UNKNOWN INDICATION
     Route: 048
     Dates: start: 20070901, end: 20080815
  6. OCELLA [Suspect]
     Indication: PRODUCT USED FOR UNKNOWN INDICATION
     Route: 048
     Dates: start: 20080801, end: 20090315
  7. COREG [Concomitant]
     Dosage: 12.5 MG, BID

REACTIONS (10)
  - CONGESTIVE CARDIOMYOPATHY [None]
  - ASTHENIA [None]
  - CARDIAC FAILURE CONGESTIVE [None]
  - PALPITATIONS [None]
  - CHEST DISCOMFORT [None]
  - ACUTE MYOCARDIAL INFARCTION [None]
  - VENTRICULAR ARRHYTHMIA [None]
  - DYSPNOEA [None]
  - ORTHOPNOEA [None]
  - DIZZINESS [None]
